FAERS Safety Report 6738175-1 (Version None)
Quarter: 2010Q2

REPORT INFORMATION
  Report Type: 
  Country: None (occurrence: None)
  Receive Date: 20100524
  Receipt Date: 20100519
  Transmission Date: 20101027
  Serious: Yes (Death)
  Sender: FDA-Public Use
  Company Number: US-BAYER-201020198NA

PATIENT
  Sex: Male

DRUGS (2)
  1. CAMPATH [Suspect]
     Indication: CHRONIC LYMPHOCYTIC LEUKAEMIA
     Dosage: TOTAL DAILY DOSE: 30 MG
     Dates: start: 20100301
  2. DEMEROL [Concomitant]
     Indication: CHEMOTHERAPY CYTOKINE PROPHYLAXIS

REACTIONS (2)
  - DEATH [None]
  - SKIN LESION [None]
